FAERS Safety Report 7137654-5 (Version None)
Quarter: 2010Q4

REPORT INFORMATION
  Report Type: 
  Country: None (occurrence: None)
  Receive Date: 20101206
  Receipt Date: 20101124
  Transmission Date: 20110411
  Serious: Yes (Disabling)
  Sender: FDA-Public Use
  Company Number: JP-SANOFI-AVENTIS-2010SA071647

PATIENT
  Sex: Male

DRUGS (2)
  1. LASIX [Suspect]
     Route: 065
  2. SPIRONOLACTONE [Concomitant]

REACTIONS (1)
  - CIRCULATORY FAILURE NEONATAL [None]
